FAERS Safety Report 7273102-2 (Version None)
Quarter: 2010Q4

REPORT INFORMATION
  Report Type: 
  Country: None (occurrence: None)
  Receive Date: 20101201
  Receipt Date: 20100708
  Transmission Date: 20110411
  Serious: Yes (Other)
  Sender: FDA-Public Use
  Company Number: 303934

PATIENT
  Age: 61 Year
  Sex: Female
  Weight: 81.6 kg

DRUGS (2)
  1. NOVOLOG [Suspect]
     Indication: INSULIN-REQUIRING TYPE 2 DIABETES MELLITUS
     Dosage: SLIDING SCALE OF ABOUT 13 UNITS, SUBCUTANEOUS
     Route: 058
  2. LANTUS [Concomitant]

REACTIONS (8)
  - BLOOD GLUCOSE INCREASED [None]
  - EXPIRED DRUG ADMINISTERED [None]
  - FLANK PAIN [None]
  - MALAISE [None]
  - MUSCLE SPASMS [None]
  - PRURITUS GENERALISED [None]
  - URINE FLOW DECREASED [None]
  - VISION BLURRED [None]
